APPROVED DRUG PRODUCT: CISATRACURIUM BESYLATE
Active Ingredient: CISATRACURIUM BESYLATE
Strength: EQ 2MG BASE/ML
Dosage Form/Route: INJECTABLE;INJECTION
Application: A211669 | Product #001 | TE Code: AP
Applicant: MEITHEAL PHARMACEUTICALS INC
Approved: Apr 25, 2019 | RLD: No | RS: Yes | Type: RX